FAERS Safety Report 21321145 (Version 2)
Quarter: 2023Q2

REPORT INFORMATION
  Report Type: Spontaneous
  Country: US (occurrence: None)
  Receive Date: 20220912
  Receipt Date: 20230522
  Transmission Date: 20230721
  Serious: No
  Sender: FDA-Public Use
  Company Number: 2022A306727

PATIENT
  Sex: Female
  Weight: 136.1 kg

DRUGS (1)
  1. BYDUREON BCISE [Suspect]
     Active Substance: EXENATIDE
     Indication: Diabetes mellitus
     Dosage: UNKNOWN DOSE, WEEKLY
     Route: 058

REACTIONS (9)
  - Weight loss poor [Unknown]
  - Eating disorder [Unknown]
  - Weight increased [Unknown]
  - Appetite disorder [Unknown]
  - Lethargy [Unknown]
  - Illness [Unknown]
  - Somnolence [Unknown]
  - Fatigue [Unknown]
  - Product dose omission issue [Unknown]
